FAERS Safety Report 10242581 (Version 3)
Quarter: 2014Q2

REPORT INFORMATION
  Report Type: Report from Study
  Country: BE (occurrence: BE)
  Receive Date: 20140617
  Receipt Date: 20140629
  Transmission Date: 20141212
  Serious: Yes (Hospitalization)
  Sender: FDA-Public Use
  Company Number: BE-ABBVIE-11P-013-0727406-01

PATIENT
  Age: 72 Year
  Sex: Male
  Weight: 58 kg

DRUGS (11)
  1. HUMIRA [Suspect]
     Indication: CROHN^S DISEASE
     Route: 058
     Dates: start: 20060629, end: 20110526
  2. SELENIUM-ACE [Concomitant]
     Indication: MINERAL SUPPLEMENTATION
     Dosage: 1 COMP DAILY
     Dates: start: 2001
  3. OMEPRAZOLE [Concomitant]
     Indication: DYSPEPSIA
     Dates: start: 200103
  4. MULTIVITAMINS [Concomitant]
     Indication: VITAMIN SUPPLEMENTATION
     Dosage: 1 COMP DAILY
  5. CARDIOASPIRIN [Concomitant]
     Indication: PROPHYLAXIS
     Dates: start: 2001
  6. FERCAYL [Concomitant]
     Indication: MINERAL SUPPLEMENTATION
     Dates: start: 200604
  7. NEUROBION [Concomitant]
     Indication: VITAMIN SUPPLEMENTATION
  8. OSTEOPLUS [Concomitant]
     Indication: JOINT STIFFNESS
     Dates: start: 2008
  9. TRITACE [Concomitant]
     Indication: DYSPNOEA EXERTIONAL
  10. COLESTID [Concomitant]
     Indication: DIARRHOEA
     Dates: start: 20100924
  11. QUESTRAN [Concomitant]
     Indication: DIARRHOEA
     Dates: start: 199906

REACTIONS (1)
  - Small intestinal obstruction [Recovered/Resolved]
